FAERS Safety Report 26210462 (Version 1)
Quarter: 2025Q4

REPORT INFORMATION
  Report Type: Spontaneous
  Country: JP (occurrence: JP)
  Receive Date: 20251229
  Receipt Date: 20251229
  Transmission Date: 20260118
  Serious: Yes (Death)
  Sender: BRISTOL-MYERS SQUIBB COMPANY
  Company Number: JP-BRISTOL-MYERS SQUIBB COMPANY-2025-173577

PATIENT
  Age: 51 Year
  Sex: Female
  Weight: 32.4 kg

DRUGS (2)
  1. OPDIVO [Suspect]
     Active Substance: NIVOLUMAB
     Indication: Oesophageal carcinoma
     Dosage: 6 CYCLES
     Route: 041
     Dates: start: 20220218, end: 20221024
  2. OPDIVO [Suspect]
     Active Substance: NIVOLUMAB
     Dosage: 6 CYCLES
     Route: 041
     Dates: start: 20221112, end: 20221219

REACTIONS (1)
  - Accident at home [Fatal]

NARRATIVE: CASE EVENT DATE: 20230112
